FAERS Safety Report 4920655-2 (Version None)
Quarter: 2006Q1

REPORT INFORMATION
  Report Type: 
  Country: None (occurrence: None)
  Receive Date: 20060223
  Receipt Date: 20060214
  Transmission Date: 20060701
  Serious: Yes (Other)
  Sender: FDA-Public Use
  Company Number: PHMT2006CA00679

PATIENT
  Sex: Male

DRUGS (2)
  1. ZELNORM [Suspect]
     Indication: IRRITABLE BOWEL SYNDROME
     Dosage: 6 MG/DAY
     Route: 048
     Dates: start: 20060210
  2. ZELNORM [Suspect]
     Dosage: 6 MG/DAY
     Route: 048
     Dates: start: 20060212, end: 20060214

REACTIONS (2)
  - ASTHENIA [None]
  - DIARRHOEA [None]
